FAERS Safety Report 12767430 (Version 1)
Quarter: 2016Q3

REPORT INFORMATION
  Report Type: Spontaneous
  Country: US (occurrence: US)
  Receive Date: 20160921
  Receipt Date: 20160921
  Transmission Date: 20161109
  Serious: Yes (Other)
  Sender: FDA-Public Use
  Company Number: US-SA-2016SA169711

PATIENT
  Age: 52 Year
  Sex: Female

DRUGS (1)
  1. NASACORT ALLERGY 24HR [Suspect]
     Active Substance: TRIAMCINOLONE ACETONIDE
     Indication: ALLERGIC SINUSITIS
     Dosage: ONE SPRAY EACH SIDE
     Route: 045
     Dates: start: 20160804, end: 20160807

REACTIONS (5)
  - Headache [Unknown]
  - Depression [Unknown]
  - Feeling abnormal [Unknown]
  - Diarrhoea [Unknown]
  - Tunnel vision [Unknown]
